FAERS Safety Report 18800477 (Version 1)
Quarter: 2021Q1

REPORT INFORMATION
  Report Type: Report from Study
  Country: MX (occurrence: MX)
  Receive Date: 20210128
  Receipt Date: 20210128
  Transmission Date: 20210419
  Serious: Yes (Death, Other)
  Sender: FDA-Public Use
  Company Number: NVSC2021MX019413

PATIENT
  Sex: Male
  Weight: 75 kg

DRUGS (1)
  1. TASIGNA [Suspect]
     Active Substance: NILOTINIB
     Indication: CHRONIC MYELOID LEUKAEMIA
     Dosage: 800 MG, QD
     Route: 048
     Dates: start: 2020, end: 20201227

REACTIONS (4)
  - Off label use [Unknown]
  - Renal disorder [Fatal]
  - Neoplasm malignant [Unknown]
  - Treatment failure [Unknown]
